FAERS Safety Report 4980447-5 (Version None)
Quarter: 2006Q2

REPORT INFORMATION
  Report Type: 
  Country: None (occurrence: None)
  Receive Date: 20060424
  Receipt Date: 20060411
  Transmission Date: 20061013
  Serious: Yes (Other)
  Sender: FDA-Public Use
  Company Number: ES-GLAXOSMITHKLINE-B0421081A

PATIENT
  Age: 78 Year
  Sex: Male

DRUGS (2)
  1. AVANDIA [Suspect]
     Dosage: 4MG PER DAY
     Route: 048
     Dates: start: 20040205, end: 20041105
  2. CONCURRENT MEDICATIONS [Concomitant]

REACTIONS (1)
  - PLEURAL EFFUSION [None]
